FAERS Safety Report 19967032 (Version 2)
Quarter: 2022Q1

REPORT INFORMATION
  Report Type: Spontaneous
  Country: US (occurrence: US)
  Receive Date: 20211019
  Receipt Date: 20220124
  Transmission Date: 20220423
  Serious: Yes (Hospitalization, Other)
  Sender: FDA-Public Use
  Company Number: US-SUN PHARMACEUTICAL INDUSTRIES LTD-2021R1-314476

PATIENT
  Sex: Male

DRUGS (1)
  1. ILUMYA [Suspect]
     Active Substance: TILDRAKIZUMAB-ASMN
     Indication: Product used for unknown indication
     Dosage: UNK
     Route: 065

REACTIONS (12)
  - Neuropathy peripheral [Unknown]
  - Pneumonia [Unknown]
  - Sepsis [Unknown]
  - Infection [Unknown]
  - Acute respiratory distress syndrome [Unknown]
  - Brain injury [Unknown]
  - Nerve injury [Unknown]
  - Lung disorder [Unknown]
  - Paraesthesia [Unknown]
  - Amnesia [Unknown]
  - Muscle spasms [Unknown]
  - Affective disorder [Unknown]
